FAERS Safety Report 8608743-0 (Version None)
Quarter: 2012Q3

REPORT INFORMATION
  Report Type: 
  Country: None (occurrence: None)
  Receive Date: 20120809
  Receipt Date: 20120809
  Transmission Date: 20120928
  Serious: Yes (Hospitalization)
  Sender: FDA-Public Use
  Company Number: None

PATIENT
  Sex: Female

DRUGS (1)
  1. LETROZOLE [Suspect]
     Indication: MASTECTOMY
     Dosage: 2.5 MG DAILY ORAL
     Route: 048
     Dates: start: 20120101

REACTIONS (4)
  - VIITH NERVE PARALYSIS [None]
  - HERPES ZOSTER [None]
  - EPISTAXIS [None]
  - ARTERIAL STENOSIS [None]
